FAERS Safety Report 8645509 (Version 4)
Quarter: 2013Q1

REPORT INFORMATION
  Report Type: Report from Study
  Country: US (occurrence: US)
  Receive Date: 20120702
  Receipt Date: 20130218
  Transmission Date: 20140127
  Serious: Yes (Hospitalization, Other)
  Sender: FDA-Public Use
  Company Number: US-ROCHE-1061147

PATIENT
  Sex: Female

DRUGS (3)
  1. PEG-INTERFERON ALFA 2A [Suspect]
     Indication: CHRONIC HEPATITIS C
     Dosage: 48WEEK TREATMENT COMPLETED
     Route: 065
     Dates: start: 20111006, end: 20121012
  2. RIBAVIRIN [Suspect]
     Indication: CHRONIC HEPATITIS C
     Dosage: 48WEEK TREATMENT COMPLETED, 2 DIVIDED DOSES
     Route: 048
     Dates: start: 20111006, end: 20121012
  3. TELAPREVIR [Suspect]
     Indication: CHRONIC HEPATITIS C
     Dosage: 48WEEK TREATMENT COMPLETED
     Route: 065
     Dates: end: 20121012

REACTIONS (15)
  - Hyponatraemia [Unknown]
  - Raynaud^s phenomenon [Unknown]
  - Oral pain [Unknown]
  - Tongue discolouration [Unknown]
  - Fatigue [Not Recovered/Not Resolved]
  - Red blood cell count decreased [Unknown]
  - White blood cell count decreased [Unknown]
  - Asthenia [Unknown]
  - Dry skin [Unknown]
  - Melanocytic naevus [Unknown]
  - Rash erythematous [Unknown]
  - White blood cell count decreased [Unknown]
  - Lethargy [Unknown]
  - Drug dose omission [Unknown]
  - Depression [Not Recovered/Not Resolved]
